FAERS Safety Report 4726810-9 (Version None)
Quarter: 2005Q3

REPORT INFORMATION
  Report Type: 
  Country: None (occurrence: None)
  Receive Date: 20050725
  Receipt Date: 20050513
  Transmission Date: 20060218
  Serious: No
  Sender: FDA-Public Use
  Company Number: USA050496785

PATIENT
  Age: 59 Year
  Sex: Male

DRUGS (2)
  1. STRATTERA [Suspect]
     Indication: ATTENTION DEFICIT/HYPERACTIVITY DISORDER
     Dosage: 40 MG DAY
     Dates: start: 20050425
  2. SYNTHROID [Concomitant]

REACTIONS (5)
  - DYSURIA [None]
  - FEELING ABNORMAL [None]
  - NOCTURIA [None]
  - PSYCHOMOTOR HYPERACTIVITY [None]
  - TESTICULAR PAIN [None]
